FAERS Safety Report 7242934-9 (Version None)
Quarter: 2011Q1

REPORT INFORMATION
  Report Type: 
  Country: None (occurrence: None)
  Receive Date: 20110125
  Receipt Date: 20110120
  Transmission Date: 20110831
  Serious: Yes (Life-Threatening, Hospitalization, Disabling)
  Sender: FDA-Public Use
  Company Number: DE-NOVOPROD-321936

PATIENT
  Age: 71 Year
  Sex: Male
  Weight: 93 kg

DRUGS (1)
  1. VICTOZA [Suspect]
     Indication: TYPE 2 DIABETES MELLITUS
     Dosage: UNK
     Route: 058
     Dates: start: 20100323, end: 20110110

REACTIONS (1)
  - PANCREATIC CARCINOMA [None]
